FAERS Safety Report 4615643-X (Version None)
Quarter: 2005Q1

REPORT INFORMATION
  Report Type: 
  Country: None (occurrence: None)
  Receive Date: 20050317
  Receipt Date: 20050310
  Transmission Date: 20050727
  Serious: Yes (Death)
  Sender: FDA-Public Use
  Company Number: 2005-BP-02829RO

PATIENT
  Age: 25 Year
  Sex: Female
  Weight: 53.1 kg

DRUGS (2)
  1. METHADONE HCL [Suspect]
  2. CITALOPRAM HYDROBROMIDE [Suspect]

REACTIONS (1)
  - MULTIPLE DRUG OVERDOSE ACCIDENTAL [None]
